FAERS Safety Report 5625199-0 (Version None)
Quarter: 2008Q1

REPORT INFORMATION
  Report Type: 
  Country: None (occurrence: None)
  Receive Date: 20080211
  Receipt Date: 20080103
  Transmission Date: 20080703
  Serious: Yes (Death)
  Sender: FDA-Public Use
  Company Number: AECAN200700155

PATIENT
  Age: 18 Year
  Sex: Male
  Weight: 75.5 kg

DRUGS (9)
  1. GAMUNEX [Suspect]
     Indication: HYPOGAMMAGLOBULINAEMIA
     Dosage: 600 MG/KG;QM;IV
     Route: 042
     Dates: end: 20070501
  2. GAMUNEX [Suspect]
  3. GAMUNEX [Suspect]
  4. GAMUNEX [Suspect]
  5. GAMUNEX [Suspect]
  6. GAMUNEX [Suspect]
     Indication: HYPOGAMMAGLOBULINAEMIA
     Dosage: IV
     Route: 042
     Dates: end: 20070501
  7. IMMUNE GLOBULIN (HUMAN) [Suspect]
     Indication: HYPOGAMMAGLOBULINAEMIA
     Dosage: IV
     Route: 042
     Dates: end: 20070501
  8. GAMIMUNE [Concomitant]
     Indication: HYPOGAMMAGLOBULINAEMIA
     Dosage: IV
     Route: 042
     Dates: start: 19900701
  9. S0000000000EPTRA DS [Concomitant]

REACTIONS (1)
  - PROGRESSIVE MULTIFOCAL LEUKOENCEPHALOPATHY [None]
